FAERS Safety Report 13178119 (Version 1)
Quarter: 2017Q1

REPORT INFORMATION
  Report Type: Spontaneous
  Country: US (occurrence: US)
  Receive Date: 20170202
  Receipt Date: 20170202
  Transmission Date: 20170428
  Serious: No
  Sender: FDA-Public Use
  Company Number: US-AUROBINDO-AUR-APL-2016-15558

PATIENT
  Age: 12 Year
  Sex: Female
  Weight: 34.92 kg

DRUGS (1)
  1. CEFDINIR FOR ORAL SUSPENSION 250 MG/5 ML [Suspect]
     Active Substance: CEFDINIR
     Indication: STREPTOCOCCAL INFECTION
     Dosage: 1.5 UNK, DAILY
     Route: 048
     Dates: start: 20161210, end: 20161211

REACTIONS (1)
  - Inflammation [Not Recovered/Not Resolved]

NARRATIVE: CASE EVENT DATE: 20161211
